FAERS Safety Report 12735076 (Version 2)
Quarter: 2017Q3

REPORT INFORMATION
  Report Type: Spontaneous
  Country: US (occurrence: US)
  Receive Date: 20160913
  Receipt Date: 20170920
  Transmission Date: 20171127
  Serious: Yes (Other)
  Sender: FDA-Public Use
  Company Number: US-JNJFOC-20160900060

PATIENT
  Sex: Female
  Weight: 157.4 kg

DRUGS (1)
  1. BENADRYL [Suspect]
     Active Substance: DIPHENHYDRAMINE HYDROCHLORIDE
     Indication: SLEEP DISORDER THERAPY
     Route: 048

REACTIONS (3)
  - Drug hypersensitivity [Recovered/Resolved]
  - Product use in unapproved indication [Recovered/Resolved]
  - Respiratory depression [Recovered/Resolved]
